FAERS Safety Report 6694822-4 (Version None)
Quarter: 2010Q2

REPORT INFORMATION
  Report Type: 
  Country: None (occurrence: None)
  Receive Date: 20100423
  Receipt Date: 20100415
  Transmission Date: 20101027
  Serious: Yes (Hospitalization)
  Sender: FDA-Public Use
  Company Number: US-MYLANLABS-2010S1006485

PATIENT
  Age: 77 Year
  Sex: Female
  Weight: 72.58 kg

DRUGS (8)
  1. LEVOTHYROXINE SODIUM [Suspect]
     Indication: HYPOTHYROIDISM
     Route: 048
     Dates: start: 20090829, end: 20090908
  2. LEVOTHYROXINE SODIUM [Suspect]
     Route: 048
     Dates: start: 20091121, end: 20091203
  3. LOPRESSOR [Concomitant]
     Indication: BLOOD PRESSURE INCREASED
  4. ASPIRIN [Concomitant]
     Indication: CARDIOVASCULAR EVENT PROPHYLAXIS
  5. NORVASC [Concomitant]
     Indication: BLOOD PRESSURE INCREASED
  6. LASIX [Concomitant]
     Indication: FLUID RETENTION
  7. TEMAZEPAM [Concomitant]
     Indication: ANXIETY
  8. HYDROCODONE BITARTRATE [Concomitant]
     Indication: ARTHRALGIA
     Dosage: 5MG/325MG

REACTIONS (5)
  - ANXIETY [None]
  - ASTHENIA [None]
  - BLOOD PRESSURE INCREASED [None]
  - DIZZINESS [None]
  - DRUG INEFFECTIVE [None]
